FAERS Safety Report 7725530-6 (Version None)
Quarter: 2011Q3

REPORT INFORMATION
  Report Type: 
  Country: None (occurrence: None)
  Receive Date: 20110902
  Receipt Date: 20110824
  Transmission Date: 20111222
  Serious: Yes (Other)
  Sender: FDA-Public Use
  Company Number: US-JNJFOC-20110812132

PATIENT
  Sex: Female
  Weight: 63.5 kg

DRUGS (3)
  1. LISINOPRIL [Concomitant]
     Route: 048
  2. OMEPRAZOLE [Concomitant]
     Route: 048
  3. DOXORUBICIN HCL [Suspect]
     Indication: OVARIAN CANCER RECURRENT
     Route: 042
     Dates: start: 20110601

REACTIONS (2)
  - EATING DISORDER [None]
  - INTESTINAL OBSTRUCTION [None]
